FAERS Safety Report 13429726 (Version 2)
Quarter: 2017Q2

REPORT INFORMATION
  Report Type: Spontaneous
  Country: US (occurrence: US)
  Receive Date: 20170412
  Receipt Date: 20170412
  Transmission Date: 20170830
  Serious: Yes (Other)
  Sender: FDA-Public Use
  Company Number: US-JNJFOC-20170334651

PATIENT
  Age: 59 Year
  Sex: Female
  Weight: 58.97 kg

DRUGS (4)
  1. LISTERINE TOTAL CARE ANTICAVITY - FRESH MINT [Suspect]
     Active Substance: SODIUM FLUORIDE
     Indication: DENTAL DISORDER PROPHYLAXIS
     Dosage: CAPFUL/LITTLE MORE THAN A CUP EVERY NIGHT (ONCE A DAY)
     Route: 048
     Dates: start: 20170329, end: 20170329
  2. VITAMIN D [Concomitant]
     Active Substance: CHOLECALCIFEROL
     Indication: ROUTINE HEALTH MAINTENANCE
     Dosage: 1 (UNIT NOT REPORTED) PER DAY, MANY YEARS
     Route: 065
  3. CALCIUM [Concomitant]
     Active Substance: CALCIUM
     Indication: ROUTINE HEALTH MAINTENANCE
     Dosage: 4 (UNIT NOT REPORTED) PER DAY FOR MANY YEARS
     Route: 065
  4. MAGNESIUM [Concomitant]
     Active Substance: MAGNESIUM
     Indication: ROUTINE HEALTH MAINTENANCE
     Dosage: 2 (UNIT NOT REPORTED) PER DAY FOR MANY YEARS
     Route: 065

REACTIONS (8)
  - Tooth injury [Not Recovered/Not Resolved]
  - Suicidal ideation [Not Recovered/Not Resolved]
  - Inappropriate schedule of drug administration [Not Recovered/Not Resolved]
  - Product label issue [None]
  - Dysgeusia [Not Recovered/Not Resolved]
  - Frustration tolerance decreased [None]
  - Tooth discolouration [Not Recovered/Not Resolved]
  - Quality of life decreased [None]

NARRATIVE: CASE EVENT DATE: 20170329
